FAERS Safety Report 12552254 (Version 1)
Quarter: 2016Q3

REPORT INFORMATION
  Report Type: Spontaneous
  Country: US (occurrence: None)
  Receive Date: 20160712
  Receipt Date: 20160712
  Transmission Date: 20161109
  Serious: Yes (Hospitalization)
  Sender: FDA-Public Use
  Company Number: None

PATIENT
  Age: 65 Year
  Sex: Male

DRUGS (1)
  1. VIOXX [Suspect]
     Active Substance: ROFECOXIB

REACTIONS (3)
  - Cerebrovascular accident [None]
  - Tooth loss [None]
  - Product use issue [None]

NARRATIVE: CASE EVENT DATE: 20110114
